FAERS Safety Report 7056253-7 (Version None)
Quarter: 2010Q4

REPORT INFORMATION
  Report Type: 
  Country: None (occurrence: None)
  Receive Date: 20101021
  Receipt Date: 20101008
  Transmission Date: 20110411
  Serious: Yes (Hospitalization)
  Sender: FDA-Public Use
  Company Number: AU-ELI_LILLY_AND_COMPANY-AU201010001633

PATIENT
  Sex: Female

DRUGS (1)
  1. OLANZAPINE [Suspect]
     Dosage: UNK, UNKNOWN
     Route: 048

REACTIONS (4)
  - EXTENSOR PLANTAR RESPONSE [None]
  - INTENTIONAL DRUG MISUSE [None]
  - MIOSIS [None]
  - OVERDOSE [None]
